FAERS Safety Report 6566915-3 (Version None)
Quarter: 2010Q1

REPORT INFORMATION
  Report Type: 
  Country: None (occurrence: None)
  Receive Date: 20100202
  Receipt Date: 20100126
  Transmission Date: 20100710
  Serious: Yes (Death, Hospitalization)
  Sender: FDA-Public Use
  Company Number: US-ROCHE-682794

PATIENT
  Age: 79 Year
  Sex: Female
  Weight: 46.9 kg

DRUGS (3)
  1. BEVACIZUMAB [Suspect]
     Dosage: FREQ: D1, D15
     Route: 042
     Dates: start: 20091214
  2. SORAFENIB [Suspect]
     Dosage: DAYS: 1-5
     Route: 048
     Dates: start: 20091214
  3. GLIPIZIDE [Concomitant]

REACTIONS (4)
  - BLOOD CREATININE INCREASED [None]
  - HYPOGLYCAEMIA [None]
  - SUDDEN DEATH [None]
  - SYNCOPE [None]
